FAERS Safety Report 5967781-7 (Version None)
Quarter: 2008Q4

REPORT INFORMATION
  Report Type: 
  Country: None (occurrence: None)
  Receive Date: 20081126
  Receipt Date: 20081118
  Transmission Date: 20090506
  Serious: Yes (Other)
  Sender: FDA-Public Use
  Company Number: DE-JNJFOC-20080802023

PATIENT
  Sex: Female

DRUGS (6)
  1. REMINYL [Suspect]
     Indication: DRUG USE FOR UNKNOWN INDICATION
     Dosage: SINCE MORE THAN 2 YEARS
     Route: 048
  2. ANTIHYPERTENSIVES NOS [Concomitant]
     Indication: HYPERTENSION
     Route: 065
  3. CARBIMAZOL [Concomitant]
     Dosage: 1/2 PER DAY
     Route: 065
  4. ATACAND [Concomitant]
     Route: 065
  5. AMLODIPINE [Concomitant]
     Dosage: 1/2 PER DAY
     Route: 065
  6. ASPIRIN [Concomitant]
     Route: 065

REACTIONS (4)
  - BACK PAIN [None]
  - MULTIPLE DRUG OVERDOSE ACCIDENTAL [None]
  - OSTEOPOROSIS [None]
  - SPINAL FRACTURE [None]
